FAERS Safety Report 18745498 (Version 1)
Quarter: 2021Q1

REPORT INFORMATION
  Report Type: Spontaneous
  Country: US (occurrence: US)
  Receive Date: 20210115
  Receipt Date: 20210115
  Transmission Date: 20210419
  Serious: Yes (Hospitalization)
  Sender: FDA-Public Use
  Company Number: US-SA-2021SA009724

PATIENT
  Age: 52 Year
  Sex: Female

DRUGS (2)
  1. OTEZLA [Concomitant]
     Active Substance: APREMILAST
  2. DUPIXENT [Suspect]
     Active Substance: DUPILUMAB
     Indication: DERMATITIS ATOPIC
     Dosage: 300 MG, QOW
     Route: 058
     Dates: start: 20200324

REACTIONS (3)
  - Colectomy [Recovering/Resolving]
  - Hernia repair [Recovering/Resolving]
  - Product dose omission issue [Unknown]

NARRATIVE: CASE EVENT DATE: 202012
